FAERS Safety Report 4598049-1 (Version None)
Quarter: 2005Q1

REPORT INFORMATION
  Report Type: 
  Country: None (occurrence: None)
  Receive Date: 20050207
  Receipt Date: 20040908
  Transmission Date: 20050727
  Serious: Yes (Hospitalization)
  Sender: FDA-Public Use
  Company Number: MEDI-0002223 (0)

PATIENT
  Age: 71 Year
  Sex: Male
  Weight: 92.0802 kg

DRUGS (11)
  1. ETHYOL [Suspect]
     Indication: RADIOTHERAPY
     Dosage: 500 MG, 5 IN 1 WK, SUBCUTANEOUS
     Route: 058
     Dates: start: 20040817, end: 20040907
  2. RADIATION THERAPY [Concomitant]
  3. CISPLATIN [Concomitant]
  4. FLUOROURACIL [Concomitant]
  5. PROTONIX [Concomitant]
  6. ATIVAN [Concomitant]
  7. FENTANYL DURAGESIC PATCH [Concomitant]
  8. NORVASC [Concomitant]
  9. ALLOPURINOL [Concomitant]
  10. COMPAZINE [Concomitant]
  11. ZOFRAN [Concomitant]

REACTIONS (4)
  - CHILLS [None]
  - ERYTHEMA [None]
  - PYREXIA [None]
  - RASH GENERALISED [None]
